FAERS Safety Report 6697806-5 (Version None)
Quarter: 2010Q2

REPORT INFORMATION
  Report Type: 
  Country: None (occurrence: None)
  Receive Date: 20100423
  Receipt Date: 20100412
  Transmission Date: 20101027
  Serious: Yes (Hospitalization)
  Sender: FDA-Public Use
  Company Number: 8048747

PATIENT
  Sex: Female
  Weight: 73 kg

DRUGS (3)
  1. CERTOLIZUMAB PEGOL (CERTOLIZUMAB PEGOL) [Suspect]
     Indication: CROHN'S DISEASE
     Dosage: SUBCUTANEOUS, SUBCUTANEOUS
     Route: 058
     Dates: start: 20080520, end: 20090703
  2. SALAZOPYRINE [Concomitant]
  3. MEDROL [Concomitant]

REACTIONS (9)
  - ABDOMINAL PAIN UPPER [None]
  - ARTHRALGIA [None]
  - ARTHRITIS [None]
  - BONE PAIN [None]
  - CHILLS [None]
  - MUSCULOSKELETAL PAIN [None]
  - PNEUMONIA [None]
  - PULMONARY TUBERCULOSIS [None]
  - VOMITING [None]
